FAERS Safety Report 23633284 (Version 1)
Quarter: 2024Q1

REPORT INFORMATION
  Report Type: Report from Study
  Country: IL (occurrence: None)
  Receive Date: 20240314
  Receipt Date: 20240314
  Transmission Date: 20240409
  Serious: Yes (Other)
  Sender: FDA-Public Use
  Company Number: 2024A056052

PATIENT
  Age: 84 Year
  Sex: Male

DRUGS (4)
  1. OSIMERTINIB [Suspect]
     Active Substance: OSIMERTINIB
     Indication: Lung adenocarcinoma
     Route: 048
  2. OSIMERTINIB [Suspect]
     Active Substance: OSIMERTINIB
     Indication: Malignant pleural effusion
     Route: 048
  3. OSIMERTINIB [Suspect]
     Active Substance: OSIMERTINIB
     Indication: Metastases to bone
     Route: 048
  4. ERDAFITINIB [Concomitant]
     Active Substance: ERDAFITINIB

REACTIONS (4)
  - Malignant neoplasm progression [Unknown]
  - Lymphadenopathy mediastinal [Unknown]
  - Pleural effusion [Unknown]
  - Gene mutation [Unknown]
